FAERS Safety Report 13802215 (Version 1)
Quarter: 2017Q3

REPORT INFORMATION
  Report Type: Spontaneous
  Country: US (occurrence: US)
  Receive Date: 20170727
  Receipt Date: 20170727
  Transmission Date: 20171127
  Serious: Yes (Life-Threatening, Disabling, Other)
  Sender: FDA-Public Use
  Company Number: None

PATIENT
  Age: 50 Year
  Sex: Female

DRUGS (1)
  1. CYMBALTA [Suspect]
     Active Substance: DULOXETINE HYDROCHLORIDE
     Dates: start: 20170309, end: 20170714

REACTIONS (9)
  - Myalgia [None]
  - Fatigue [None]
  - Acne [None]
  - Disturbance in attention [None]
  - Drug dependence [None]
  - Sleep disorder [None]
  - Paraesthesia [None]
  - Headache [None]
  - Rash [None]

NARRATIVE: CASE EVENT DATE: 20170714
